FAERS Safety Report 11832040 (Version 3)
Quarter: 2016Q1

REPORT INFORMATION
  Report Type: Report from Study
  Country: DE (occurrence: DE)
  Receive Date: 20151214
  Receipt Date: 20160204
  Transmission Date: 20160525
  Serious: Yes (Hospitalization)
  Sender: FDA-Public Use
  Company Number: DE-BIOGEN-2015BI130159

PATIENT
  Age: 43 Year
  Sex: Female
  Weight: 55 kg

DRUGS (10)
  1. LIMPTAR [Concomitant]
     Active Substance: AMINOPHYLLINE\QUININE SULFATE
     Route: 048
  2. MAGNESIUM VERLA [Concomitant]
     Active Substance: MAGNESIUM
     Indication: MUSCLE SPASMS
     Route: 048
     Dates: start: 20121120
  3. OPIPRAMOL [Concomitant]
     Active Substance: OPIPRAMOL
     Indication: SLEEP DISORDER
     Route: 048
     Dates: start: 20130429
  4. JODETTEN [Concomitant]
     Indication: HYPOTHYROIDISM
     Route: 048
     Dates: start: 20100727
  5. LIMPTAR [Concomitant]
     Active Substance: AMINOPHYLLINE\QUININE SULFATE
     Indication: MUSCLE SPASMS
     Route: 048
     Dates: start: 20130203
  6. JULIETTE [Concomitant]
     Active Substance: CYPROTERONE ACETATE\ETHINYL ESTRADIOL
     Indication: CONTRACEPTION
     Route: 048
     Dates: start: 200805
  7. IMOGAS FORTE [Concomitant]
     Indication: FLATULENCE
     Route: 048
     Dates: start: 20101205
  8. BG00012 [Suspect]
     Active Substance: DIMETHYL FUMARATE
     Indication: RELAPSING-REMITTING MULTIPLE SCLEROSIS
     Route: 048
     Dates: start: 20150603
  9. ACICLOVIR [Concomitant]
     Active Substance: ACYCLOVIR
     Indication: ORAL HERPES
     Route: 048
     Dates: start: 2004
  10. VITAMIN B12 [Concomitant]
     Active Substance: CYANOCOBALAMIN
     Indication: VITAMIN B12 DEFICIENCY
     Route: 030
     Dates: start: 20140811

REACTIONS (1)
  - Relapsing-remitting multiple sclerosis [Not Recovered/Not Resolved]

NARRATIVE: CASE EVENT DATE: 20150923
